FAERS Safety Report 8607494 (Version 2)
Quarter: 2012Q4

REPORT INFORMATION
  Report Type: 
  Country: JP (occurrence: JP)
  Receive Date: 20120611
  Receipt Date: 20121005
  Transmission Date: 20130627
  Serious: Yes (Hospitalization, Other)
  Sender: FDA-Public Use
  Company Number: JP-MPIJNJ-2012-03606

PATIENT

DRUGS (5)
  1. VELCADE [Suspect]
     Indication: PRODUCT USED FOR UNKNOWN INDICATION
     Dosage: UNK mg, UNK
     Route: 042
     Dates: start: 20120518, end: 20120528
  2. VELCADE [Suspect]
     Dosage: 2 UNK, UNK
     Route: 042
     Dates: start: 20120528, end: 20120607
  3. BAKTAR [Suspect]
     Indication: PRODUCT USED FOR UNKNOWN INDICATION
     Dosage: UNK
     Route: 048
     Dates: start: 20120518, end: 20120529
  4. ZOVIRAX                            /00587301/ [Concomitant]
     Dosage: 200 mg, UNK
     Dates: start: 20120518, end: 20120529
  5. DECADRON                           /00016001/ [Concomitant]
     Dosage: UNK
     Dates: start: 20120528, end: 20120529

REACTIONS (4)
  - Phlebitis [Recovered/Resolved]
  - Rash [Recovered/Resolved]
  - Disseminated intravascular coagulation [Recovered/Resolved]
  - Drug reaction with eosinophilia and systemic symptoms [Recovered/Resolved]
